FAERS Safety Report 13168402 (Version 2)
Quarter: 2017Q1

REPORT INFORMATION
  Report Type: Report from Study
  Country: FR (occurrence: FR)
  Receive Date: 20170131
  Receipt Date: 20170206
  Transmission Date: 20170428
  Serious: Yes (Death, Hospitalization, Other)
  Sender: FDA-Public Use
  Company Number: FR-PFIZER INC-2017037768

PATIENT
  Age: 67 Year
  Sex: Female
  Weight: 57 kg

DRUGS (5)
  1. FULVESTRANT [Concomitant]
     Active Substance: FULVESTRANT
     Dosage: UNK
     Dates: start: 20161128, end: 20161128
  2. FULVESTRANT [Concomitant]
     Active Substance: FULVESTRANT
     Dosage: UNK
     Route: 030
     Dates: start: 20161114, end: 20161114
  3. FULVESTRANT [Concomitant]
     Active Substance: FULVESTRANT
     Dosage: UNK
     Route: 030
     Dates: start: 20161212, end: 20161212
  4. FULVESTRANT [Concomitant]
     Active Substance: FULVESTRANT
     Dosage: 500 MG, MONTHLY
     Route: 030
     Dates: end: 201612
  5. PALBOCICLIB [Suspect]
     Active Substance: PALBOCICLIB
     Indication: BREAST CANCER METASTATIC
     Dosage: 125 MG, DAILY, CYCLIC
     Route: 048
     Dates: start: 20161114, end: 20161204

REACTIONS (15)
  - General physical health deterioration [Unknown]
  - Tachycardia [Unknown]
  - Peritonitis [Fatal]
  - Hyponatraemia [Unknown]
  - Neoplasm progression [Fatal]
  - Hepatocellular injury [Recovered/Resolved]
  - Nausea [Unknown]
  - Blood bilirubin increased [Recovered/Resolved]
  - Dyspnoea [Unknown]
  - Pulmonary embolism [Fatal]
  - Neutropenia [Unknown]
  - Vomiting [Unknown]
  - Weight decreased [Unknown]
  - Decreased appetite [Unknown]
  - Anaemia [Unknown]

NARRATIVE: CASE EVENT DATE: 20161125
